FAERS Safety Report 13631294 (Version 2)
Quarter: 2017Q2

REPORT INFORMATION
  Report Type: Spontaneous
  Country: US (occurrence: US)
  Receive Date: 20170608
  Receipt Date: 20170621
  Transmission Date: 20170830
  Serious: Yes (Death, Other)
  Sender: FDA-Public Use
  Company Number: US-SAOL THERAPEUTICS-2017SAO00988

PATIENT
  Age: 51 Year
  Sex: Female
  Weight: 81.63 kg

DRUGS (22)
  1. COUMADIN [Concomitant]
     Active Substance: WARFARIN SODIUM
  2. LORAZEPAM. [Concomitant]
     Active Substance: LORAZEPAM
  3. PROVIGIC [Concomitant]
  4. MIRAPEX [Concomitant]
     Active Substance: PRAMIPEXOLE DIHYDROCHLORIDE
  5. GABLOFEN [Suspect]
     Active Substance: BACLOFEN
     Dosage: 71.98 ?G, \DAY
     Route: 037
  6. FENTANYL. [Concomitant]
     Active Substance: FENTANYL
  7. ZOFRAN [Concomitant]
     Active Substance: ONDANSETRON HYDROCHLORIDE
  8. DILAUDIOL [Concomitant]
  9. LAGIL [Concomitant]
  10. REGLAN [Concomitant]
     Active Substance: METOCLOPRAMIDE HYDROCHLORIDE
  11. OXYCODONE [Concomitant]
     Active Substance: OXYCODONE
  12. LOVENOX [Concomitant]
     Active Substance: ENOXAPARIN SODIUM
  13. WELLBUTRIN [Concomitant]
     Active Substance: BUPROPION HYDROCHLORIDE
  14. DILAUDID [Concomitant]
     Active Substance: HYDROMORPHONE HYDROCHLORIDE
  15. TEGRETOL [Concomitant]
     Active Substance: CARBAMAZEPINE
  16. PRIMIDONE. [Concomitant]
     Active Substance: PRIMIDONE
  17. ATARAX [Concomitant]
     Active Substance: HYDROXYZINE HYDROCHLORIDE
  18. ASA [Concomitant]
     Active Substance: ASPIRIN
  19. COMPAZINE [Concomitant]
     Active Substance: PROCHLORPERAZINE MALEATE
  20. MYLANTA [Concomitant]
     Active Substance: ALUMINUM HYDROXIDE\DIMETHICONE\MAGNESIUM HYDROXIDE
  21. TYLENOL [Concomitant]
     Active Substance: ACETAMINOPHEN
  22. LIPITOR [Concomitant]
     Active Substance: ATORVASTATIN CALCIUM

REACTIONS (2)
  - Osteomyelitis [Unknown]
  - Death [Fatal]

NARRATIVE: CASE EVENT DATE: 201705
